FAERS Safety Report 7075265-0 (Version None)
Quarter: 2010Q4

REPORT INFORMATION
  Report Type: 
  Country: None (occurrence: None)
  Receive Date: 20101030
  Receipt Date: 20100901
  Transmission Date: 20110411
  Serious: No
  Sender: FDA-Public Use
  Company Number: US-WYE-H16323810

PATIENT
  Age: 34 Year
  Sex: Female
  Weight: 136.2 kg

DRUGS (4)
  1. ADVIL PM [Suspect]
     Indication: MIGRAINE
     Dosage: TOOK 4 TO 5 CAPLETS
     Route: 048
     Dates: start: 20100709, end: 20100709
  2. ADVIL PM [Suspect]
     Dosage: UNKNOWN
     Route: 048
     Dates: start: 20100601
  3. LYRICA [Concomitant]
  4. EXCEDRIN (MIGRAINE) [Concomitant]

REACTIONS (6)
  - CONDITION AGGRAVATED [None]
  - DIZZINESS [None]
  - DRUG INEFFECTIVE [None]
  - LETHARGY [None]
  - MIGRAINE [None]
  - OVERDOSE [None]
